FAERS Safety Report 6115836-9 (Version None)
Quarter: 2009Q1

REPORT INFORMATION
  Report Type: 
  Country: None (occurrence: None)
  Receive Date: 20090311
  Receipt Date: 20090227
  Transmission Date: 20090719
  Serious: No
  Sender: FDA-Public Use
  Company Number: HECT-1000034

PATIENT
  Age: 79 Year
  Sex: Male

DRUGS (5)
  1. HECTOROL (DOXERCALCIFERO) CAPSULE, 0.5MCG [Suspect]
     Indication: HYPERPARATHYROIDISM SECONDARY
     Dosage: 0.5 MCG, QOD, ORAL
     Route: 048
     Dates: start: 20081201
  2. AMLODIPINE (AMLODIPINE MESILATE) [Concomitant]
  3. FLOMAX (TAMSULOSN HYDROCHLORIDE) [Concomitant]
  4. FUROSEMIDE (FUROSEMIDE SODIUM) [Concomitant]
  5. ACETAMINOPHEN [Concomitant]

REACTIONS (1)
  - PRURITUS [None]
